FAERS Safety Report 13359120 (Version 1)
Quarter: 2017Q1

REPORT INFORMATION
  Report Type: Spontaneous
  Country: US (occurrence: US)
  Receive Date: 20170321
  Receipt Date: 20170321
  Transmission Date: 20170429
  Serious: Yes (Other)
  Sender: FDA-Public Use
  Company Number: None

PATIENT
  Age: 68 Year
  Sex: Female
  Weight: 58.5 kg

DRUGS (10)
  1. ATORVASTATIN [Concomitant]
     Active Substance: ATORVASTATIN
  2. MULTIVITAMIN [Concomitant]
     Active Substance: VITAMINS
  3. GLUCOSAMINE +MSM [Concomitant]
  4. METOPROLOL. [Concomitant]
     Active Substance: METOPROLOL
  5. FISH OIL [Concomitant]
     Active Substance: FISH OIL
  6. STOOL SOFTENER (DOCUSATE) [Concomitant]
     Active Substance: DOCUSATE
  7. ASPIRIN. [Concomitant]
     Active Substance: ASPIRIN
  8. LISINOPRIL 10 MG [Suspect]
     Active Substance: LISINOPRIL
     Indication: HYPERTENSION
     Dosage: ?          QUANTITY:90 TABLET(S);?
     Route: 048
  9. COQ10 [Concomitant]
     Active Substance: UBIDECARENONE
  10. CALCIUM+VITAMIN D3 [Concomitant]
     Active Substance: CALCIUM\CHOLECALCIFEROL

REACTIONS (5)
  - Mouth swelling [None]
  - Peripheral swelling [None]
  - Pharyngeal oedema [None]
  - Hypersensitivity [None]
  - Dyspnoea [None]

NARRATIVE: CASE EVENT DATE: 20170320
